FAERS Safety Report 22041757 (Version 1)
Quarter: 2023Q1

REPORT INFORMATION
  Report Type: Report from Study
  Country: US (occurrence: US)
  Receive Date: 20230227
  Receipt Date: 20230227
  Transmission Date: 20230418
  Serious: Yes (Other)
  Sender: FDA-Public Use
  Company Number: US-ABBVIE-4320155

PATIENT
  Age: 50 Year
  Sex: Female

DRUGS (1)
  1. RINVOQ [Suspect]
     Active Substance: UPADACITINIB
     Indication: Rheumatoid arthritis
     Dosage: FIRST ADMIN DATE: 16 FEB 2023
     Route: 048
     Dates: end: 20230222

REACTIONS (3)
  - Pulmonary oedema [Unknown]
  - Stomatitis [Unknown]
  - Acne [Unknown]

NARRATIVE: CASE EVENT DATE: 20230201
